FAERS Safety Report 19240511 (Version 4)
Quarter: 2021Q2

REPORT INFORMATION
  Report Type: Spontaneous
  Country: ZA (occurrence: ZA)
  Receive Date: 20210511
  Receipt Date: 20210526
  Transmission Date: 20210717
  Serious: Yes (Other)
  Sender: FDA-Public Use
  Company Number: ZA-CELLTRION INC.-2021ZA006334

PATIENT

DRUGS (3)
  1. REMSIMA [Suspect]
     Active Substance: INFLIXIMAB
     Indication: CROHN^S DISEASE
     Dosage: 400 MG, 0 WEEKS; 2 WEEKS; TO BE CONTINUED AT 6 WEEKS
     Route: 042
     Dates: start: 20210421
  2. REMSIMA [Suspect]
     Active Substance: INFLIXIMAB
     Dosage: 400 MG, 2 WEEKS
     Route: 042
     Dates: start: 20210505
  3. STP [Concomitant]
     Indication: CROHN^S DISEASE
     Dosage: 2 G BD
     Dates: start: 2011

REACTIONS (2)
  - Dyspepsia [Recovered/Resolved]
  - Underdose [Unknown]

NARRATIVE: CASE EVENT DATE: 20210428
